FAERS Safety Report 11343636 (Version 3)
Quarter: 2015Q3

REPORT INFORMATION
  Report Type: Spontaneous
  Country: AU (occurrence: AU)
  Receive Date: 20150806
  Receipt Date: 20150828
  Transmission Date: 20151125
  Serious: Yes (Hospitalization, Other)
  Sender: FDA-Public Use
  Company Number: AU-HOSPIRA-2960108

PATIENT
  Age: 45 Year
  Sex: Female
  Weight: 103.5 kg

DRUGS (10)
  1. PALONOSETRON [Concomitant]
     Active Substance: PALONOSETRON
     Indication: PRODUCT USED FOR UNKNOWN INDICATION
     Route: 042
     Dates: start: 20150720
  2. FLUOROURACIL. [Suspect]
     Active Substance: FLUOROURACIL
     Indication: MUCINOUS CYSTADENOCARCINOMA OVARY
     Dates: start: 20150720, end: 20150804
  3. GLUCOSE [Concomitant]
     Active Substance: DEXTROSE
     Indication: MEDICATION DILUTION
     Dosage: DOUBLE THE QUANTITY
  4. DEXAMETHASONE. [Concomitant]
     Active Substance: DEXAMETHASONE
     Indication: PRODUCT USED FOR UNKNOWN INDICATION
     Route: 042
     Dates: start: 20150720
  5. LORAZEPAM. [Concomitant]
     Active Substance: LORAZEPAM
     Indication: PRODUCT USED FOR UNKNOWN INDICATION
     Dosage: FIRST THING IN THE MORNING
     Dates: start: 20150817
  6. OXALIPLATIN. [Suspect]
     Active Substance: OXALIPLATIN
     Indication: MUCINOUS CYSTADENOCARCINOMA OVARY
     Route: 042
     Dates: start: 20150720
  7. APREPITANT. [Concomitant]
     Active Substance: APREPITANT
     Indication: PRODUCT USED FOR UNKNOWN INDICATION
     Route: 048
     Dates: start: 20150720
  8. LEUCOVORINE CALCIUM [Suspect]
     Active Substance: LEUCOVORIN CALCIUM
     Indication: MUCINOUS CYSTADENOCARCINOMA OVARY
     Route: 040
     Dates: start: 20150720, end: 20150721
  9. METOCLOPRAMIDE. [Concomitant]
     Active Substance: METOCLOPRAMIDE
     Indication: PRODUCT USED FOR UNKNOWN INDICATION
     Route: 042
     Dates: start: 20150720
  10. FLUOROURACIL. [Suspect]
     Active Substance: FLUOROURACIL
     Indication: MUCINOUS CYSTADENOCARCINOMA OVARY
     Dates: start: 20150817

REACTIONS (6)
  - Neuropathy peripheral [Recovered/Resolved]
  - Neuropathy peripheral [Recovered/Resolved]
  - Hypersensitivity [Recovered/Resolved]
  - Nausea [Unknown]
  - Hypersensitivity [Recovered/Resolved]
  - Vomiting [Unknown]

NARRATIVE: CASE EVENT DATE: 20150720
